FAERS Safety Report 24139312 (Version 1)
Quarter: 2024Q3

REPORT INFORMATION
  Report Type: Spontaneous
  Country: TR (occurrence: TR)
  Receive Date: 20240726
  Receipt Date: 20240726
  Transmission Date: 20241017
  Serious: Yes (Hospitalization)
  Sender: STRIDES
  Company Number: TR-STRIDES ARCOLAB LIMITED-2024SP009142

PATIENT
  Age: 57 Year
  Sex: Female

DRUGS (8)
  1. DISULFIRAM [Suspect]
     Active Substance: DISULFIRAM
     Indication: Alcohol use disorder
     Dosage: UNK, TABLET (INITIAL DOSE NOT STATED)
     Route: 065
  2. DISULFIRAM [Suspect]
     Active Substance: DISULFIRAM
     Dosage: UNK, OD, TABLET (SOMETIMES TAKING MORE THAN ONCE A DAY)
     Route: 065
  3. DISULFIRAM [Suspect]
     Active Substance: DISULFIRAM
     Dosage: UNK, QD, TABLET (UP TO 1000-1500 MG/DAY)
     Route: 065
  4. DISULFIRAM [Suspect]
     Active Substance: DISULFIRAM
     Dosage: UNK, TABLET (TOOK AN EXCESSIVE AMOUNT OF DISULFIRAM)
     Route: 065
  5. PERINDOPRIL [Concomitant]
     Active Substance: PERINDOPRIL
     Indication: Hypertension
     Dosage: 5 MILLIGRAM, QD
     Route: 048
  6. CLOPIDOGREL [Concomitant]
     Active Substance: CLOPIDOGREL BISULFATE
     Indication: Cerebrovascular accident
     Dosage: 75 MILLIGRAM, QD
     Route: 048
  7. FLUOXETINE [Concomitant]
     Active Substance: FLUOXETINE HYDROCHLORIDE
     Indication: Generalised anxiety disorder
     Dosage: 20 MILLIGRAM, QD
     Route: 048
  8. OLANZAPINE [Concomitant]
     Active Substance: OLANZAPINE
     Indication: Generalised anxiety disorder
     Dosage: 2.5 MILLIGRAM, QD
     Route: 065

REACTIONS (8)
  - Cardiotoxicity [Recovered/Resolved]
  - Hepatotoxicity [Recovered/Resolved]
  - Muscle disorder [Recovered/Resolved]
  - Neurotoxicity [Recovered/Resolved]
  - Neuropathy peripheral [Recovered/Resolved]
  - Posterior reversible encephalopathy syndrome [Recovered/Resolved]
  - Intentional product misuse [Unknown]
  - Intentional overdose [Unknown]
